FAERS Safety Report 5398362-4 (Version None)
Quarter: 2007Q3

REPORT INFORMATION
  Report Type: 
  Country: None (occurrence: None)
  Receive Date: 20070726
  Receipt Date: 20070523
  Transmission Date: 20080115
  Serious: No
  Sender: FDA-Public Use
  Company Number: US-AMGEN-KDL226111

PATIENT
  Sex: Female
  Weight: 44.5 kg

DRUGS (9)
  1. PROCRIT [Suspect]
     Indication: ANAEMIA
     Dates: start: 20070101
  2. OMEGA 3 [Suspect]
  3. INDERAL [Concomitant]
  4. CARDIZEM [Concomitant]
  5. ACTOS [Concomitant]
  6. PROTONIX [Concomitant]
  7. ACTIVELLA [Concomitant]
  8. SELENIUM SULFIDE [Concomitant]
  9. XANAX [Concomitant]

REACTIONS (1)
  - DIARRHOEA [None]
